FAERS Safety Report 6889814-6 (Version None)
Quarter: 2010Q3

REPORT INFORMATION
  Report Type: 
  Country: None (occurrence: None)
  Receive Date: 20100730
  Receipt Date: 20080515
  Transmission Date: 20110219
  Serious: Yes (Other)
  Sender: FDA-Public Use
  Company Number: US-PFIZER INC-2008042199

PATIENT
  Sex: Female

DRUGS (37)
  1. LIPITOR [Suspect]
     Indication: STENT PLACEMENT
     Dates: start: 20071201, end: 20080101
  2. LIDODERM [Concomitant]
     Route: 061
  3. PREDNISONE [Concomitant]
  4. PREDNISONE [Concomitant]
  5. PLAQUENIL [Concomitant]
  6. PLAQUENIL [Concomitant]
  7. MIACALCIN [Concomitant]
  8. MIACALCIN [Concomitant]
  9. ARAVA [Concomitant]
  10. ARAVA [Concomitant]
  11. MULTI-VITAMINS [Concomitant]
  12. MULTI-VITAMINS [Concomitant]
  13. FOLIC ACID [Concomitant]
  14. FOLIC ACID [Concomitant]
  15. CALCIUM CARBONATE [Concomitant]
  16. CALCIUM CARBONATE [Concomitant]
  17. METOPROLOL TARTRATE [Concomitant]
  18. METOPROLOL TARTRATE [Concomitant]
  19. HYDROCHLOROTHIAZIDE [Concomitant]
  20. HYDROCHLOROTHIAZIDE [Concomitant]
  21. OMEPRAZOLE [Concomitant]
  22. OMEPRAZOLE [Concomitant]
  23. MAGNESIUM OXIDE [Concomitant]
  24. MAGNESIUM OXIDE [Concomitant]
  25. BACTRIM DS [Concomitant]
  26. BACTRIM DS [Concomitant]
  27. HUMIRA [Concomitant]
  28. HUMIRA [Concomitant]
  29. ALL OTHER THERAPEUTIC PRODUCTS [Concomitant]
  30. ALL OTHER THERAPEUTIC PRODUCTS [Concomitant]
  31. ACETYLSALICYLIC ACID SRT [Concomitant]
  32. ACETYLSALICYLIC ACID SRT [Concomitant]
  33. PLAVIX [Concomitant]
  34. PLAVIX [Concomitant]
  35. NITROGLYCERIN [Concomitant]
     Dosage: AS NEEDED
  36. NITROGLYCERIN [Concomitant]
  37. PERCOCET [Concomitant]

REACTIONS (2)
  - ANGIOEDEMA [None]
  - PERIORBITAL OEDEMA [None]
